FAERS Safety Report 7263373-0 (Version None)
Quarter: 2011Q1

REPORT INFORMATION
  Report Type: 
  Country: None (occurrence: None)
  Receive Date: 20110130
  Receipt Date: 20101105
  Transmission Date: 20110831
  Serious: No
  Sender: FDA-Public Use
  Company Number: US-ABBOTT-10P-163-0683762-00

PATIENT
  Age: 51 Year
  Sex: Male

DRUGS (5)
  1. BACTRIM [Concomitant]
     Indication: FISTULA
     Dosage: DAILY
  2. AVODART [Concomitant]
     Indication: PROSTATIC DISORDER
  3. HUMIRA [Suspect]
  4. HUMIRA [Suspect]
     Dosage: 80 MG LOADING DOSE
     Dates: start: 20101104, end: 20101104
  5. HUMIRA [Suspect]
     Indication: CROHN'S DISEASE
     Dates: start: 20101022, end: 20101022

REACTIONS (1)
  - PAIN [None]
